FAERS Safety Report 8328415-X (Version None)
Quarter: 2012Q2

REPORT INFORMATION
  Report Type: 
  Country: None (occurrence: None)
  Receive Date: 20120502
  Receipt Date: 20120424
  Transmission Date: 20120825
  Serious: Yes (Death, Hospitalization, Other)
  Sender: FDA-Public Use
  Company Number: PHEH2012US008676

PATIENT
  Sex: Female

DRUGS (6)
  1. METFORMIN HCL [Concomitant]
     Dosage: 850 MG, BID
     Route: 048
  2. GILENYA [Suspect]
     Indication: RELAPSING-REMITTING MULTIPLE SCLEROSIS
     Dosage: 0.5 MG, QD
     Route: 048
     Dates: start: 20120127
  3. CITALOPRAM [Concomitant]
     Dosage: 10 MG, QD
     Route: 048
  4. EXCEDRIN (MIGRAINE) [Concomitant]
     Indication: HEADACHE
  5. TYLENOL (CAPLET) [Concomitant]
  6. IBUPROFEN [Concomitant]
     Route: 048

REACTIONS (37)
  - COUGH [None]
  - HYPERTENSION [None]
  - PCO2 DECREASED [None]
  - INTRAVENTRICULAR HAEMORRHAGE [None]
  - INTRACRANIAL HYPOTENSION [None]
  - CEREBRAL HAEMATOMA [None]
  - RESPIRATORY FAILURE [None]
  - BRAIN OEDEMA [None]
  - PROCEDURAL HAEMORRHAGE [None]
  - PLEURAL EFFUSION [None]
  - INTRACRANIAL PRESSURE INCREASED [None]
  - CHILLS [None]
  - CARDIOMEGALY [None]
  - OXYGEN SATURATION DECREASED [None]
  - PNEUMONIA ASPIRATION [None]
  - CSF PROTEIN INCREASED [None]
  - BLOOD BICARBONATE DECREASED [None]
  - BLOOD POTASSIUM DECREASED [None]
  - BRAIN DEATH [None]
  - PROCEDURAL COMPLICATION [None]
  - LUNG INFILTRATION [None]
  - PNEUMOCEPHALUS [None]
  - BLOOD GLUCOSE INCREASED [None]
  - BLOOD PH INCREASED [None]
  - PO2 DECREASED [None]
  - BLOOD CHLORIDE INCREASED [None]
  - CEREBROVASCULAR ACCIDENT [None]
  - CEREBRAL INFARCTION [None]
  - ENCEPHALOPATHY [None]
  - DYSPNOEA [None]
  - NASAL CONGESTION [None]
  - SUBARACHNOID HAEMORRHAGE [None]
  - OEDEMA PERIPHERAL [None]
  - ATELECTASIS [None]
  - PYREXIA [None]
  - HEART RATE INCREASED [None]
  - BLOOD PHOSPHORUS DECREASED [None]
